FAERS Safety Report 6398051-3 (Version None)
Quarter: 2009Q4

REPORT INFORMATION
  Report Type: 
  Country: None (occurrence: None)
  Receive Date: 20091013
  Receipt Date: 20091001
  Transmission Date: 20100525
  Serious: Yes (Hospitalization)
  Sender: FDA-Public Use
  Company Number: DE-ROCHE-660952

PATIENT
  Sex: Male

DRUGS (4)
  1. MYCOPHENOLATE MOFETIL [Suspect]
     Route: 065
  2. MYCOPHENOLATE MOFETIL [Suspect]
     Dosage: DOSE REDUCED
     Route: 065
  3. CYCLOSPORINE [Suspect]
     Route: 065
  4. CYCLOSPORINE [Suspect]
     Dosage: DOSE REDUCED
     Route: 065

REACTIONS (1)
  - TRANSPLANT REJECTION [None]
